FAERS Safety Report 9643959 (Version 1)
Quarter: 2013Q4

REPORT INFORMATION
  Report Type: Spontaneous
  Country: IT (occurrence: None)
  Receive Date: 20131023
  Receipt Date: 20131023
  Transmission Date: 20140711
  Serious: Yes (Life-Threatening)
  Sender: FDA-Public Use
  Company Number: 2013AP009071

PATIENT
  Age: 69 Year
  Sex: Male

DRUGS (4)
  1. PANTOPRAZOLE [Suspect]
     Indication: DUODENAL ULCER
     Route: 048
  2. AMOXICILLIN (AMOXICILLIN) [Concomitant]
  3. CLARITHROMYCIN (CLARITHROMYCIN) [Concomitant]
  4. ENOXAPARIN (ENOXAPARIN) [Concomitant]

REACTIONS (1)
  - Renal failure acute [None]
